FAERS Safety Report 4290334-6 (Version None)
Quarter: 2004Q1

REPORT INFORMATION
  Report Type: 
  Country: None (occurrence: None)
  Receive Date: 20040126
  Receipt Date: 20031016
  Transmission Date: 20041129
  Serious: No
  Sender: FDA-Public Use
  Company Number: USA030538203

PATIENT
  Age: 28 Year
  Sex: Female

DRUGS (10)
  1. FORTEO [Suspect]
     Indication: OSTEOPOROSIS
     Dosage: 20 UG/DAY
     Dates: start: 20030507
  2. SINGULAIR [Concomitant]
  3. ULTRACET [Concomitant]
  4. MEPERGAN [Concomitant]
  5. BENTYL [Concomitant]
  6. CORAL CALCIUM DAILY [Concomitant]
  7. MAGNESIUM [Concomitant]
  8. ALBUTEROL [Concomitant]
  9. DEMULEN 1/35-21 [Concomitant]
  10. VIOXX [Concomitant]

REACTIONS (7)
  - FATIGUE [None]
  - INJECTION SITE BURNING [None]
  - INJECTION SITE ERYTHEMA [None]
  - INJECTION SITE HAEMORRHAGE [None]
  - INJECTION SITE PAIN [None]
  - MUSCLE CRAMP [None]
  - PAIN IN EXTREMITY [None]
